FAERS Safety Report 25146327 (Version 1)
Quarter: 2025Q2

REPORT INFORMATION
  Report Type: Spontaneous
  Country: CN (occurrence: CN)
  Receive Date: 20250401
  Receipt Date: 20250401
  Transmission Date: 20250716
  Serious: Yes (Life-Threatening, Other)
  Sender: BRACCO
  Company Number: CN-BRACCO-2025CN01890

PATIENT
  Age: 69 Year
  Sex: Male

DRUGS (1)
  1. IOMEPROL [Suspect]
     Active Substance: IOMEPROL
     Indication: Angiogram
     Route: 041
     Dates: start: 20250313, end: 20250313

REACTIONS (3)
  - Unresponsive to stimuli [Recovering/Resolving]
  - Nystagmus [Recovering/Resolving]
  - Eye disorder [Recovering/Resolving]

NARRATIVE: CASE EVENT DATE: 20250313
